FAERS Safety Report 25100723 (Version 2)
Quarter: 2025Q2

REPORT INFORMATION
  Report Type: Spontaneous
  Country: US (occurrence: US)
  Receive Date: 20250320
  Receipt Date: 20250507
  Transmission Date: 20250716
  Serious: No
  Sender: MERCK SHARP & DOHME LLC
  Company Number: US-009507513-2266665

PATIENT
  Sex: Female
  Weight: 79.4 kg

DRUGS (22)
  1. SOTATERCEPT [Suspect]
     Active Substance: SOTATERCEPT
     Indication: Product used for unknown indication
  2. SOTATERCEPT [Suspect]
     Active Substance: SOTATERCEPT
  3. SOTATERCEPT [Suspect]
     Active Substance: SOTATERCEPT
  4. SOTATERCEPT [Suspect]
     Active Substance: SOTATERCEPT
  5. REMODULIN [Suspect]
     Active Substance: TREPROSTINIL
     Indication: Pulmonary arterial hypertension
     Route: 058
     Dates: start: 20231101
  6. AMBRISENTAN [Concomitant]
     Active Substance: AMBRISENTAN
  7. ALBUTEROL SULFATE [Concomitant]
     Active Substance: ALBUTEROL SULFATE
  8. BACLOFEN [Concomitant]
     Active Substance: BACLOFEN
  9. KETAMINE HYDROCHLORIDE [Concomitant]
     Active Substance: KETAMINE HYDROCHLORIDE
  10. LECITHIN [Concomitant]
     Active Substance: LECITHIN
  11. GABAPENTIN [Concomitant]
     Active Substance: GABAPENTIN
  12. PROMETHAZINE HYDROCHLORIDE [Concomitant]
     Active Substance: PROMETHAZINE HYDROCHLORIDE
  13. CLONIDINE [Concomitant]
     Active Substance: CLONIDINE
  14. KETOPROFEN [Concomitant]
     Active Substance: KETOPROFEN
  15. OXYGEN [Concomitant]
     Active Substance: OXYGEN
  16. PREDNISONE [Concomitant]
     Active Substance: PREDNISONE
  17. BUSPIRONE HCL [Concomitant]
     Active Substance: BUSPIRONE HYDROCHLORIDE
  18. LIDOCAINE HYDROCHLORIDE [Concomitant]
     Active Substance: LIDOCAINE HYDROCHLORIDE
  19. FUROSEMIDE [Concomitant]
     Active Substance: FUROSEMIDE
  20. AMITRIPTYLINE [Concomitant]
     Active Substance: AMITRIPTYLINE
  21. POLOXAMER [Concomitant]
     Active Substance: POLOXAMER
  22. SILDENAFIL [Concomitant]
     Active Substance: SILDENAFIL

REACTIONS (1)
  - Haemoglobin increased [Unknown]
